FAERS Safety Report 7793238-7 (Version None)
Quarter: 2011Q3

REPORT INFORMATION
  Report Type: 
  Country: None (occurrence: None)
  Receive Date: 20110929
  Receipt Date: 20110916
  Transmission Date: 20111222
  Serious: Yes (Other)
  Sender: FDA-Public Use
  Company Number: 1000023494

PATIENT
  Age: 80 Year
  Sex: Female

DRUGS (14)
  1. MEMANTINE [Suspect]
     Indication: DEMENTIA
     Dosage: 20 MG (20 MG,1 IN 1 D),ORAL
     Route: 048
     Dates: start: 20110805, end: 20110810
  2. WARFARIN SODIUM [Concomitant]
  3. ARICEPT D (DONEPEZIL HYDROCHLORIDE) (DONEPEZIL HYDROCHLORIDE) [Concomitant]
  4. MEMANTINE [Suspect]
     Indication: DEMENTIA
     Dosage: 15 MG (15 MG,1 IN 1 D),ORAL
     Route: 048
     Dates: start: 20110820, end: 20110823
  5. PREDNISOLONE [Concomitant]
  6. AZ (AZULENE) (AZULENE) [Concomitant]
  7. PRIMOBOLAN (METENOLONE ENANTATE) (METENOLONE ENANTATE) [Concomitant]
  8. EDIROL (ELDECALCITOL) (ELDECALCITOL) [Concomitant]
  9. BONALON (ALENDRONATE SODIUM) (ALENDRONATE SODIUM) [Concomitant]
  10. VESICARE (SOLIFENACIN SUCCINATE) (SOLIFENACIN SUCCINATE) [Concomitant]
  11. MEMANTINE [Suspect]
     Indication: DEMENTIA
     Dosage: SEE IMAGE
     Route: 048
     Dates: start: 20110624, end: 20110707
  12. MEMANTINE [Suspect]
     Indication: DEMENTIA
     Dosage: SEE IMAGE
     Route: 048
     Dates: start: 20110708, end: 20110721
  13. MEMANTINE [Suspect]
     Indication: DEMENTIA
     Dosage: SEE IMAGE
     Route: 048
     Dates: start: 20110722, end: 20110804
  14. YOKU-KAN-SAN (HERBAL EXTRACT NOS) (HERBAL EXTRACT NOS) [Concomitant]

REACTIONS (6)
  - BLOOD PRESSURE FLUCTUATION [None]
  - DIZZINESS [None]
  - BLOOD PRESSURE INCREASED [None]
  - HEADACHE [None]
  - BLOOD GLUCOSE INCREASED [None]
  - INTERNATIONAL NORMALISED RATIO INCREASED [None]
